FAERS Safety Report 25498988 (Version 1)
Quarter: 2025Q3

REPORT INFORMATION
  Report Type: Spontaneous
  Country: CA (occurrence: CA)
  Receive Date: 20250701
  Receipt Date: 20250701
  Transmission Date: 20251020
  Serious: Yes (Other)
  Sender: AUROBINDO
  Company Number: CA-AUROBINDO-AUR-APL-2025-031961

PATIENT
  Age: 50 Year
  Sex: Female

DRUGS (6)
  1. CLINDAMYCIN [Suspect]
     Active Substance: CLINDAMYCIN
     Indication: Drug therapy
     Route: 026
  2. PREDNISONE [Suspect]
     Active Substance: PREDNISONE
     Indication: Mass
     Route: 065
  3. HYALURONIDASE [Suspect]
     Active Substance: HYALURONIDASE
     Indication: Drug therapy
     Dosage: 1500 INTERNATIONAL UNIT PER MILLILITRE, FOUR TIMES/DAY
     Route: 026
  4. HYALURONIDASE [Suspect]
     Active Substance: HYALURONIDASE
     Route: 026
  5. HYALURONIC ACID [Concomitant]
     Active Substance: HYALURONIC ACID
     Indication: Lacrimal disorder
     Route: 065
  6. CORTISONE [Concomitant]
     Active Substance: CORTISONE

REACTIONS (1)
  - Drug ineffective [Unknown]
